FAERS Safety Report 7933815-3 (Version None)
Quarter: 2011Q4

REPORT INFORMATION
  Report Type: 
  Country: None (occurrence: None)
  Receive Date: 20111122
  Receipt Date: 20111116
  Transmission Date: 20120403
  Serious: Yes (Hospitalization)
  Sender: FDA-Public Use
  Company Number: PHEH2011US008773

PATIENT
  Sex: Female

DRUGS (1)
  1. GILENYA [Suspect]
     Indication: PAIN
     Dosage: 0.5 MG, QD
     Route: 048

REACTIONS (6)
  - BACK PAIN [None]
  - PERSONALITY DISORDER [None]
  - PALPITATIONS [None]
  - DYSPNOEA [None]
  - APPETITE DISORDER [None]
  - DRUG ADMINISTRATION ERROR [None]
